FAERS Safety Report 8128029-0 (Version None)
Quarter: 2012Q1

REPORT INFORMATION
  Report Type: 
  Country: None (occurrence: None)
  Receive Date: 20120210
  Receipt Date: 20120207
  Transmission Date: 20120608
  Serious: Yes (Life-Threatening, Hospitalization)
  Sender: FDA-Public Use
  Company Number: US-JNJFOC-20120204063

PATIENT
  Age: 40 Year
  Sex: Male

DRUGS (3)
  1. ZOLOFT [Suspect]
     Indication: SUICIDE ATTEMPT
     Route: 048
  2. RISPERDAL [Suspect]
     Indication: SUICIDE ATTEMPT
     Route: 048
  3. COCAINE [Suspect]
     Indication: DRUG ABUSE
     Route: 065

REACTIONS (6)
  - INCOHERENT [None]
  - EXPIRED DRUG ADMINISTERED [None]
  - PYREXIA [None]
  - DEPRESSED LEVEL OF CONSCIOUSNESS [None]
  - MULTIPLE DRUG OVERDOSE [None]
  - DRUG SCREEN POSITIVE [None]
